FAERS Safety Report 18585885 (Version 2)
Quarter: 2021Q1

REPORT INFORMATION
  Report Type: Spontaneous
  Country: ES (occurrence: ES)
  Receive Date: 20201207
  Receipt Date: 20210323
  Transmission Date: 20210419
  Serious: Yes (Other)
  Sender: FDA-Public Use
  Company Number: ES-ELI_LILLY_AND_COMPANY-ES202011010713

PATIENT
  Age: 87 Year
  Sex: Male

DRUGS (6)
  1. INSULIN GLARGINE [Suspect]
     Active Substance: INSULIN GLARGINE
     Dosage: 25 INTERNATIONAL UNIT, UNKNOWN
     Route: 058
  2. INSULIN LISPRO [Suspect]
     Active Substance: INSULIN LISPRO
     Dosage: 2 INTERNATIONAL UNIT, EACH AFTERNOON
     Route: 058
  3. INSULIN LISPRO [Suspect]
     Active Substance: INSULIN LISPRO
     Dosage: 4 INTERNATIONAL UNIT, EACH EVENING
     Route: 058
  4. INSULIN LISPRO [Suspect]
     Active Substance: INSULIN LISPRO
     Dosage: 7 INTERNATIONAL UNIT, UNKNOWN
     Route: 058
  5. INSULIN LISPRO [Suspect]
     Active Substance: INSULIN LISPRO
     Indication: DIABETES MELLITUS
     Dosage: 8 INTERNATIONAL UNIT, EACH MORNING
     Route: 058
  6. INSULIN GLARGINE [Suspect]
     Active Substance: INSULIN GLARGINE
     Indication: DIABETES MELLITUS
     Dosage: 24 INTERNATIONAL UNIT, UNKNOWN
     Route: 058

REACTIONS (7)
  - Postprandial hypoglycaemia [Recovered/Resolved]
  - Malaise [Recovered/Resolved]
  - Pancreatic disorder [Unknown]
  - Dizziness [Recovered/Resolved]
  - Hyperglycaemia [Unknown]
  - Blood glucose fluctuation [Not Recovered/Not Resolved]
  - Hypoglycaemia [Recovered/Resolved]
